FAERS Safety Report 10139166 (Version 1)
Quarter: 2014Q2

REPORT INFORMATION
  Report Type: Spontaneous
  Country: DE (occurrence: DE)
  Receive Date: 20140429
  Receipt Date: 20140429
  Transmission Date: 20141212
  Serious: Yes (Other)
  Sender: FDA-Public Use
  Company Number: DE-PFIZER INC-2014105884

PATIENT
  Sex: Male

DRUGS (1)
  1. ZELDOX [Suspect]
     Dosage: 120 MG, DAILY

REACTIONS (1)
  - Psychotic disorder [Not Recovered/Not Resolved]
